FAERS Safety Report 24970084 (Version 1)
Quarter: 2025Q1

REPORT INFORMATION
  Report Type: Report from Study
  Country: US (occurrence: US)
  Receive Date: 20250214
  Receipt Date: 20250214
  Transmission Date: 20250409
  Serious: Yes (Hospitalization)
  Sender: RANBAXY
  Company Number: US-SUN PHARMACEUTICAL INDUSTRIES LTD-2025R1-493265

PATIENT
  Sex: Female

DRUGS (4)
  1. MORPHINE [Suspect]
     Active Substance: MORPHINE
     Indication: Analgesic therapy
     Route: 065
  2. FENTANYL [Suspect]
     Active Substance: FENTANYL
     Indication: Product used for unknown indication
     Route: 065
  3. BUPIVACAINE [Suspect]
     Active Substance: BUPIVACAINE
     Indication: Product used for unknown indication
     Route: 065
  4. PHENYLEPHRINE [Suspect]
     Active Substance: PHENYLEPHRINE
     Indication: Product used for unknown indication
     Route: 065

REACTIONS (2)
  - Exposure during pregnancy [Unknown]
  - Treatment failure [Unknown]
